FAERS Safety Report 14345810 (Version 4)
Quarter: 2018Q1

REPORT INFORMATION
  Report Type: Spontaneous
  Country: US (occurrence: US)
  Receive Date: 20180103
  Receipt Date: 20180328
  Transmission Date: 20180509
  Serious: Yes (Other)
  Sender: FDA-Public Use
  Company Number: PHEH2018US000460

PATIENT
  Age: 23 Year
  Sex: Female

DRUGS (6)
  1. ZOFRAN [Suspect]
     Active Substance: ONDANSETRON HYDROCHLORIDE
     Indication: VOMITING IN PREGNANCY
     Dosage: 01 DF, Q8H
     Route: 048
  2. ONDANSETRON HYDROCHLORIDE. [Suspect]
     Active Substance: ONDANSETRON HYDROCHLORIDE
     Indication: VOMITING IN PREGNANCY
     Dosage: 4 MG, Q8H
     Route: 048
     Dates: start: 20070616, end: 20070616
  3. ZOFRAN [Suspect]
     Active Substance: ONDANSETRON HYDROCHLORIDE
     Indication: VOMITING IN PREGNANCY
     Dosage: 4 MG, QD
     Route: 042
     Dates: start: 20070705, end: 20071006
  4. ONDANSETRON HYDROCHLORIDE. [Suspect]
     Active Substance: ONDANSETRON HYDROCHLORIDE
     Indication: VOMITING IN PREGNANCY
     Dosage: 04 MG, PRN
     Route: 048
     Dates: start: 20070728, end: 200708
  5. ONDANSETRON HYDROCHLORIDE. [Suspect]
     Active Substance: ONDANSETRON HYDROCHLORIDE
     Indication: VOMITING IN PREGNANCY
     Dosage: 8 MG, PRN
     Route: 048
     Dates: start: 20070801, end: 200710
  6. ONDANSETRONE DR. REDDY^S [Suspect]
     Active Substance: ONDANSETRON HYDROCHLORIDE
     Indication: VOMITING IN PREGNANCY
     Dosage: 8 MG, UNK
     Route: 048
     Dates: start: 20071026, end: 20071026

REACTIONS (16)
  - Weight decreased [Unknown]
  - Dyspepsia [Unknown]
  - Constipation [Unknown]
  - Product use in unapproved indication [Unknown]
  - Premature labour [Unknown]
  - Chills [Unknown]
  - Vulvovaginal candidiasis [Unknown]
  - Cholelithiasis [Unknown]
  - Emotional distress [Unknown]
  - Pelvic pain [Unknown]
  - Premature delivery [Unknown]
  - Maternal exposure during pregnancy [Unknown]
  - Injury [Unknown]
  - Diarrhoea [Unknown]
  - Urinary tract infection [Unknown]
  - Abdominal pain [Unknown]

NARRATIVE: CASE EVENT DATE: 20071226
